FAERS Safety Report 19094133 (Version 1)
Quarter: 2021Q2

REPORT INFORMATION
  Report Type: Other
  Country: ZM (occurrence: ZM)
  Receive Date: 20210405
  Receipt Date: 20210405
  Transmission Date: 20210717
  Serious: Yes (Hospitalization)
  Sender: FDA-Public Use
  Company Number: ZM-B.BRAUN MEDICAL INC.-2108905

PATIENT
  Age: 5 Year
  Sex: Female

DRUGS (6)
  1. BENZATHINE PENICILLIN [Concomitant]
     Active Substance: PENICILLIN G BENZATHINE
  2. IMIPENEM [Concomitant]
     Active Substance: IMIPENEM
     Route: 042
  3. TRAMADOL. [Concomitant]
     Active Substance: TRAMADOL
     Route: 030
  4. METRONIDAZOLE INJECTION USP (5 MG/ML) IN PAB? PLASTIC CONTAINER (NDA 0 [Suspect]
     Active Substance: METRONIDAZOLE
     Route: 042
  5. ANALGESIA [Concomitant]
     Active Substance: UNSPECIFIED INGREDIENT
  6. CEFTRIAXONE. [Concomitant]
     Active Substance: CEFTRIAXONE

REACTIONS (1)
  - Drug ineffective [None]
